FAERS Safety Report 5391895-6 (Version None)
Quarter: 2007Q3

REPORT INFORMATION
  Report Type: 
  Country: None (occurrence: None)
  Receive Date: 20070718
  Receipt Date: 20070710
  Transmission Date: 20080115
  Serious: Yes (Other)
  Sender: FDA-Public Use
  Company Number: AE-707-234

PATIENT
  Age: 83 Year
  Sex: Male

DRUGS (4)
  1. LIDODERM [Suspect]
     Indication: ARTHRITIS
     Dosage: OHE PATCH A DAY
  2. FLOMAX [Concomitant]
  3. LIPITOR [Concomitant]
  4. OTC MEDICATIONS FOR ARTHRITIS [Concomitant]

REACTIONS (2)
  - CARDIAC DISORDER [None]
  - VASCULAR GRAFT [None]
